FAERS Safety Report 12580148 (Version 4)
Quarter: 2016Q3

REPORT INFORMATION
  Report Type: Spontaneous
  Country: US (occurrence: US)
  Receive Date: 20160721
  Receipt Date: 20160818
  Transmission Date: 20161109
  Serious: Yes (Other)
  Sender: FDA-Public Use
  Company Number: US-BAYER-2016-137008

PATIENT
  Age: 34 Year
  Sex: Male
  Weight: 81.63 kg

DRUGS (4)
  1. BETASERON [Suspect]
     Active Substance: INTERFERON BETA-1B
     Indication: MULTIPLE SCLEROSIS
     Dosage: 0.25 MG, QOD, WEEK 7
     Route: 058
     Dates: start: 201606
  2. BETASERON [Suspect]
     Active Substance: INTERFERON BETA-1B
     Indication: MULTIPLE SCLEROSIS
     Dosage: 0.187 MG, QOD, ON WEEKS 5 AND 6
     Route: 058
     Dates: start: 201607
  3. BETASERON [Suspect]
     Active Substance: INTERFERON BETA-1B
     Indication: MULTIPLE SCLEROSIS
     Dosage: 0.062 MG, QOD, ON WEEKS 1 AND 2
     Route: 058
     Dates: start: 201606
  4. BETASERON [Suspect]
     Active Substance: INTERFERON BETA-1B
     Indication: MULTIPLE SCLEROSIS
     Dosage: 0.125 MG, QOD, ON WEEKS 3 AND 4
     Route: 058
     Dates: start: 201606

REACTIONS (6)
  - Fall [None]
  - Dizziness [None]
  - Arthropathy [None]
  - Muscular weakness [None]
  - Pain in extremity [None]
  - Injection site bruising [None]

NARRATIVE: CASE EVENT DATE: 201606
